FAERS Safety Report 25636832 (Version 1)
Quarter: 2025Q3

REPORT INFORMATION
  Report Type: Spontaneous
  Country: GB (occurrence: GB)
  Receive Date: 20250804
  Receipt Date: 20250804
  Transmission Date: 20251020
  Serious: Yes (Disabling, Other)
  Sender: ACCORD
  Company Number: None

PATIENT
  Age: 83 Year
  Sex: Male

DRUGS (2)
  1. FINASTERIDE [Suspect]
     Active Substance: FINASTERIDE
     Indication: Prostatomegaly
     Dates: start: 20250626, end: 20250722
  2. TAMSULOSIN [Concomitant]
     Active Substance: TAMSULOSIN

REACTIONS (3)
  - Medication error [Unknown]
  - Depression [Not Recovered/Not Resolved]
  - Lethargy [Not Recovered/Not Resolved]

NARRATIVE: CASE EVENT DATE: 20250626
